FAERS Safety Report 5155638-3 (Version None)
Quarter: 2006Q4

REPORT INFORMATION
  Report Type: 
  Country: None (occurrence: None)
  Receive Date: 20061114
  Receipt Date: 20061031
  Transmission Date: 20070319
  Serious: Yes (Other)
  Sender: FDA-Public Use
  Company Number: 2006BI015890

PATIENT
  Age: 44 Year
  Sex: Female

DRUGS (2)
  1. AVONEX [Suspect]
     Indication: MULTIPLE SCLEROSIS
     Dosage: 30 UG;QW;IM
     Route: 030
     Dates: start: 20040603, end: 20060801
  2. AVONEX [Suspect]
     Indication: MULTIPLE SCLEROSIS
     Dosage: 30 UG;QW;
     Dates: start: 20060801, end: 20060901

REACTIONS (5)
  - ANXIETY DISORDER [None]
  - BODY TEMPERATURE INCREASED [None]
  - DELIRIUM [None]
  - DEPRESSION [None]
  - INFLUENZA LIKE ILLNESS [None]
